FAERS Safety Report 19110253 (Version 1)
Quarter: 2021Q2

REPORT INFORMATION
  Report Type: Spontaneous
  Country: DE (occurrence: DE)
  Receive Date: 20210408
  Receipt Date: 20210408
  Transmission Date: 20210717
  Serious: Yes (Other)
  Sender: FDA-Public Use
  Company Number: DE-ASTRAZENECA-2021A249446

PATIENT
  Age: 80 Year
  Sex: Female

DRUGS (2)
  1. XIGDUO XR [Suspect]
     Active Substance: DAPAGLIFLOZIN PROPANEDIOL\METFORMIN HYDROCHLORIDE
     Dosage: 5 / 1000 MG, TWO TIMES A DAY
     Route: 048
  2. CORTISONE [Concomitant]
     Active Substance: CORTISONE
     Indication: DIABETES MELLITUS

REACTIONS (11)
  - Skin odour abnormal [Unknown]
  - Hyperhidrosis [Unknown]
  - Nausea [Unknown]
  - Anxiety [Unknown]
  - Urine odour abnormal [Unknown]
  - Blood glucose increased [Unknown]
  - Thirst [Unknown]
  - Hypertension [Unknown]
  - Dyspnoea [Unknown]
  - Back disorder [Unknown]
  - Neck pain [Unknown]
